FAERS Safety Report 9217076 (Version 2)
Quarter: 2013Q2

REPORT INFORMATION
  Report Type: Spontaneous
  Country: US (occurrence: None)
  Receive Date: 20120827
  Receipt Date: 20121123
  Transmission Date: 20140414
  Serious: No
  Sender: FDA-Public Use
  Company Number: 354913

PATIENT
  Age: 80 Year
  Sex: Male

DRUGS (4)
  1. VICTOZA [Suspect]
     Indication: TYPE 2 DIABETES MELLITUS
     Route: 058
  2. LEVEMIR FLEX PEN [Suspect]
     Dosage: 35U, TWICE A DAY SUBCUTANEOUS
     Route: 058
  3. NOVOLOG FLEX PEN [Suspect]
     Dosage: SLIDING SCALE
  4. GLYBURIDE (GLIBENCLAMIDE) [Concomitant]

REACTIONS (2)
  - Weight decreased [None]
  - Blood glucose increased [None]
